FAERS Safety Report 10747120 (Version 2)
Quarter: 2015Q3

REPORT INFORMATION
  Report Type: Report from Study
  Country: US (occurrence: US)
  Receive Date: 20150129
  Receipt Date: 20150825
  Transmission Date: 20151125
  Serious: Yes (Hospitalization, Other)
  Sender: FDA-Public Use
  Company Number: US-AMGEN-USASL2015007322

PATIENT
  Age: 68 Year
  Sex: Female

DRUGS (1)
  1. ENBREL [Suspect]
     Active Substance: ETANERCEPT
     Indication: PSORIASIS
     Dosage: 50 MG, UNK
     Route: 065
     Dates: start: 2013, end: 201412

REACTIONS (5)
  - Renal cyst [Recovered/Resolved]
  - Immune system disorder [Unknown]
  - Endometrial cancer [Unknown]
  - No therapeutic response [Unknown]
  - Ureteral cyst [Recovered/Resolved]

NARRATIVE: CASE EVENT DATE: 201410
